FAERS Safety Report 6369371-3 (Version None)
Quarter: 2009Q3

REPORT INFORMATION
  Report Type: 
  Country: None (occurrence: None)
  Receive Date: 20090917
  Receipt Date: 20090910
  Transmission Date: 20100115
  Serious: Yes (Life-Threatening, Hospitalization)
  Sender: FDA-Public Use
  Company Number: 2009090014

PATIENT
  Age: 18 Year
  Sex: Female

DRUGS (1)
  1. SOMA [Suspect]

REACTIONS (3)
  - INTENTIONAL OVERDOSE [None]
  - RESPIRATORY ARREST [None]
  - SELF-MEDICATION [None]
